FAERS Safety Report 4888686-9 (Version None)
Quarter: 2005Q4

REPORT INFORMATION
  Report Type: 
  Country: None (occurrence: None)
  Receive Date: 20051215
  Receipt Date: 20050712
  Transmission Date: 20060501
  Serious: Yes (Other)
  Sender: FDA-Public Use
  Company Number: 2005077370

PATIENT
  Sex: Male
  Weight: 108.8633 kg

DRUGS (4)
  1. BEXTRA [Suspect]
     Indication: ARTHRITIS
     Dosage: 20 MG (20 MG, 1 IN 1 D), ORAL
     Route: 048
     Dates: start: 20030101
  2. ZESTRIL [Concomitant]
  3. ASPIRIN [Concomitant]
  4. PREVACID [Concomitant]

REACTIONS (3)
  - ANKLE FRACTURE [None]
  - BLOOD PRESSURE DECREASED [None]
  - WEIGHT INCREASED [None]
